FAERS Safety Report 9034181 (Version 1)
Quarter: 2013Q1

REPORT INFORMATION
  Report Type: Spontaneous
  Country: IT (occurrence: IT)
  Receive Date: 20130128
  Receipt Date: 20130128
  Transmission Date: 20140127
  Serious: Yes (Other)
  Sender: FDA-Public Use
  Company Number: IT-AMGEN-ITASP2011009024

PATIENT
  Age: 25 Year
  Sex: Female
  Weight: 110 kg

DRUGS (2)
  1. NPLATE [Suspect]
     Dosage: 1 MUG/KG, UNK
     Dates: start: 20091001
  2. NPLATE [Suspect]
     Dosage: 9 MUG/KG, UNK

REACTIONS (2)
  - Drug ineffective [Unknown]
  - Epistaxis [Unknown]
